FAERS Safety Report 7897922-6 (Version None)
Quarter: 2011Q4

REPORT INFORMATION
  Report Type: 
  Country: None (occurrence: None)
  Receive Date: 20111107
  Receipt Date: 20111021
  Transmission Date: 20120403
  Serious: Yes (Hospitalization)
  Sender: FDA-Public Use
  Company Number: US-UCBSA-044362

PATIENT
  Sex: Female
  Weight: 72.57 kg

DRUGS (1)
  1. CIMZIA [Suspect]
     Indication: CROHN'S DISEASE
     Dosage: 400
     Route: 058
     Dates: start: 20100326

REACTIONS (1)
  - CLOSTRIDIAL INFECTION [None]
